FAERS Safety Report 5849766-4 (Version None)
Quarter: 2008Q3

REPORT INFORMATION
  Report Type: 
  Country: None (occurrence: None)
  Receive Date: 20080815
  Receipt Date: 20080808
  Transmission Date: 20090109
  Serious: No
  Sender: FDA-Public Use
  Company Number: 003605

PATIENT
  Age: 9 Year
  Sex: Male

DRUGS (5)
  1. BUSULFEX [Suspect]
     Indication: STEM CELL TRANSPLANT
     Dosage: 18.4 ML, INTRAVENOUS
     Route: 042
     Dates: start: 20071128, end: 20071201
  2. CYCLOPHOSPHAMIDE [Concomitant]
  3. PHENYTOIN [Concomitant]
  4. TACROLIMUS [Concomitant]
  5. METHOTREXATE [Concomitant]

REACTIONS (9)
  - ANOREXIA [None]
  - GASTRITIS [None]
  - HYPERCALCAEMIA [None]
  - INFECTION [None]
  - LIVER DISORDER [None]
  - NAUSEA [None]
  - OCCULT BLOOD [None]
  - VENOOCCLUSIVE LIVER DISEASE [None]
  - VOMITING [None]
